FAERS Safety Report 7874349-4 (Version None)
Quarter: 2011Q4

REPORT INFORMATION
  Report Type: 
  Country: None (occurrence: None)
  Receive Date: 20111030
  Receipt Date: 20110519
  Transmission Date: 20120403
  Serious: No
  Sender: FDA-Public Use
  Company Number: US-AMGEN-USASP2011025982

PATIENT
  Age: 63 Year
  Sex: Female

DRUGS (3)
  1. SULFASALAZINE [Concomitant]
  2. ARAVA [Concomitant]
  3. ENBREL [Suspect]
     Indication: RHEUMATOID ARTHRITIS
     Dosage: 50 MG, QWK
     Dates: start: 20110323

REACTIONS (1)
  - PRURITUS GENERALISED [None]
